FAERS Safety Report 9695128 (Version 2)
Quarter: 2014Q1

REPORT INFORMATION
  Report Type: Report from Study
  Country: US (occurrence: US)
  Receive Date: 20131119
  Receipt Date: 20140203
  Transmission Date: 20141002
  Serious: Yes (Death)
  Sender: FDA-Public Use
  Company Number: PHEH2013US024120

PATIENT
  Age: 39 Year
  Sex: Female

DRUGS (3)
  1. EXJADE [Suspect]
     Indication: IRON OVERLOAD
     Dosage: 1250 MG, DAILY (2 TABLET OF 500MG AND 1 TABLET OF 250MG)
     Route: 048
  2. AMBIEN [Concomitant]
     Dosage: UNK UKN, UNK
  3. FOLIC ACID [Concomitant]
     Dosage: UNK UKN, UNK

REACTIONS (1)
  - Death [Fatal]
